FAERS Safety Report 8156342-X (Version None)
Quarter: 2012Q1

REPORT INFORMATION
  Report Type: 
  Country: None (occurrence: None)
  Receive Date: 20120222
  Receipt Date: 20120215
  Transmission Date: 20120608
  Serious: Yes (Other)
  Sender: FDA-Public Use
  Company Number: US-PFIZER INC-2012042002

PATIENT
  Sex: Male
  Weight: 81.633 kg

DRUGS (6)
  1. PERCOCET [Concomitant]
     Indication: ARTHROPATHY
     Dosage: 10 MG DAILY
  2. LISINOPRIL [Concomitant]
     Indication: HYPERTENSION
     Dosage: 20 MG, DAILY
  3. IBUPROFEN (ADVIL) [Suspect]
     Indication: PAIN
     Dosage: 300 MG, 2X/DAY
  4. LYRICA [Suspect]
     Indication: NEUROPATHY PERIPHERAL
     Dosage: 300 MG, 2X/DAY
     Route: 048
     Dates: start: 20030101
  5. ZOCOR [Concomitant]
     Indication: BLOOD CHOLESTEROL INCREASED
     Dosage: 20 MG, DAILY
  6. PERCOCET [Concomitant]
     Indication: BACK DISORDER

REACTIONS (3)
  - PAIN [None]
  - VISION BLURRED [None]
  - DRUG INEFFECTIVE [None]
